FAERS Safety Report 6211437-2 (Version None)
Quarter: 2009Q2

REPORT INFORMATION
  Report Type: 
  Country: None (occurrence: None)
  Receive Date: 20090522
  Receipt Date: 20090414
  Transmission Date: 20091009
  Serious: No
  Sender: FDA-Public Use
  Company Number: 8044798

PATIENT
  Age: 47 Year
  Sex: Female

DRUGS (11)
  1. CIMZIA [Suspect]
     Indication: CROHN'S DISEASE
     Dosage: 400 MG
     Dates: start: 20081013
  2. OXYCONTIN [Concomitant]
  3. RESTORIL [Concomitant]
  4. TRAZODONE HCL [Concomitant]
  5. NEXIUM [Concomitant]
  6. CLOTRIMAZOLE [Concomitant]
  7. VYTORIN [Concomitant]
  8. NEURONTIN [Concomitant]
  9. MAXIDEX [Concomitant]
  10. TRAMADOL HCL [Concomitant]
  11. FLEXERIL [Concomitant]

REACTIONS (3)
  - CONSTIPATION [None]
  - FAECALOMA [None]
  - WEIGHT INCREASED [None]
